FAERS Safety Report 8207222-2 (Version None)
Quarter: 2012Q1

REPORT INFORMATION
  Report Type: 
  Country: None (occurrence: None)
  Receive Date: 20120312
  Receipt Date: 20120228
  Transmission Date: 20120608
  Serious: Yes (Other)
  Sender: FDA-Public Use
  Company Number: 2012MA003049

PATIENT
  Age: 83 Year
  Sex: Male

DRUGS (12)
  1. MIRTAZAPINE [Suspect]
     Indication: DEPRESSION
     Dosage: 15 MG; PO
     Route: 048
     Dates: start: 20111229, end: 20120114
  2. LAXIDO [Concomitant]
  3. LANSOPRAZOLE [Concomitant]
  4. MIRTAZAPINE [Suspect]
     Indication: DEPRESSION
     Dosage: 15 MG;PO
     Route: 048
     Dates: start: 20111229, end: 20120114
  5. ACETAMINOPHEN [Concomitant]
  6. FLUDROCORTISONE ACETATE [Concomitant]
  7. STALEVO 100 [Concomitant]
  8. SLOW-K [Concomitant]
  9. FINASTERIDE [Concomitant]
  10. QUETIAPINE [Concomitant]
  11. ENTACAPONE [Concomitant]
  12. SINEMET [Concomitant]

REACTIONS (2)
  - NEUTROPENIA [None]
  - SEPSIS [None]
